FAERS Safety Report 19048541 (Version 1)
Quarter: 2021Q1

REPORT INFORMATION
  Report Type: Spontaneous
  Country: US (occurrence: US)
  Receive Date: 20210323
  Receipt Date: 20210323
  Transmission Date: 20210420
  Serious: Yes (Other)
  Sender: FDA-Public Use
  Company Number: US-ALXN-A202103462

PATIENT
  Age: 59 Year
  Sex: Female

DRUGS (2)
  1. SALINE                             /00075401/ [Concomitant]
     Active Substance: SODIUM CHLORIDE
     Indication: PRODUCT USED FOR UNKNOWN INDICATION
     Dosage: 500 MG, UNK
     Route: 065
  2. SOLIRIS [Suspect]
     Active Substance: ECULIZUMAB
     Indication: PAROXYSMAL NOCTURNAL HAEMOGLOBINURIA
     Dosage: UNK, Q2W
     Route: 065
     Dates: start: 200812, end: 201911

REACTIONS (5)
  - Loss of consciousness [Unknown]
  - Incorrect product administration duration [Unknown]
  - Headache [Recovered/Resolved]
  - Dizziness [Unknown]
  - Extravascular haemolysis [Unknown]
